FAERS Safety Report 17088195 (Version 4)
Quarter: 2020Q1

REPORT INFORMATION
  Report Type: Spontaneous
  Country: US (occurrence: US)
  Receive Date: 20191128
  Receipt Date: 20200309
  Transmission Date: 20200409
  Serious: Yes (Hospitalization, Other)
  Sender: FDA-Public Use
  Company Number: US-GILEAD-2019-0439469

PATIENT
  Sex: Male

DRUGS (13)
  1. HYDROCHLOROTHIAZIDE. [Concomitant]
     Active Substance: HYDROCHLOROTHIAZIDE
  2. LORAZEPAM. [Concomitant]
     Active Substance: LORAZEPAM
  3. SOFOSBUVIR;VELPATASVIR [Suspect]
     Active Substance: SOFOSBUVIR\VELPATASVIR
     Indication: CHRONIC HEPATITIS C
     Dosage: 1 DOSAGE FORM, QD
     Route: 048
     Dates: start: 20191101, end: 202001
  4. METFORMIN HYDROCHLORIDE. [Concomitant]
     Active Substance: METFORMIN HYDROCHLORIDE
  5. SIMVASTATIN. [Concomitant]
     Active Substance: SIMVASTATIN
  6. LISINOPRIL. [Concomitant]
     Active Substance: LISINOPRIL
  7. SEROQUEL [Concomitant]
     Active Substance: QUETIAPINE FUMARATE
  8. METHADONE HYDROCHLORIDE. [Concomitant]
     Active Substance: METHADONE HYDROCHLORIDE
  9. GLIPIZIDE. [Concomitant]
     Active Substance: GLIPIZIDE
  10. PLAVIX [Concomitant]
     Active Substance: CLOPIDOGREL BISULFATE
  11. TERAZOSIN HYDROCHLORIDE. [Concomitant]
     Active Substance: TERAZOSIN HYDROCHLORIDE
  12. GABAPENTIN. [Concomitant]
     Active Substance: GABAPENTIN
  13. OMEPRAZOLE. [Concomitant]
     Active Substance: OMEPRAZOLE

REACTIONS (9)
  - Toe amputation [Recovered/Resolved]
  - Diabetes mellitus [Not Recovered/Not Resolved]
  - Headache [Unknown]
  - Gastric ulcer [Recovered/Resolved]
  - Angiopathy [Unknown]
  - Vomiting [Unknown]
  - Stent placement [Recovered/Resolved]
  - Skin ulcer [Not Recovered/Not Resolved]
  - Nausea [Recovered/Resolved]
